FAERS Safety Report 5965347-6 (Version None)
Quarter: 2008Q4

REPORT INFORMATION
  Report Type: 
  Country: None (occurrence: None)
  Receive Date: 20081121
  Receipt Date: 20081121
  Transmission Date: 20090506
  Serious: No
  Sender: FDA-Public Use
  Company Number: None

PATIENT
  Age: 67 Year
  Sex: Male
  Weight: 135.4 kg

DRUGS (1)
  1. SORAFENIB [Suspect]
     Indication: RENAL CELL CARCINOMA
     Dosage: 400 MG BID PO
     Route: 048
     Dates: start: 20080208, end: 20080411

REACTIONS (5)
  - DIARRHOEA [None]
  - FATIGUE [None]
  - OROPHARYNGEAL PAIN [None]
  - RASH [None]
  - SKIN EXFOLIATION [None]
